FAERS Safety Report 15828560 (Version 1)
Quarter: 2019Q1

REPORT INFORMATION
  Report Type: Spontaneous
  Country: US (occurrence: US)
  Receive Date: 20190115
  Receipt Date: 20190115
  Transmission Date: 20190417
  Serious: No
  Sender: FDA-Public Use
  Company Number: US-ALLERGAN-1772882US

PATIENT
  Age: 88 Year
  Sex: Female

DRUGS (9)
  1. ATORVASTATIN [Concomitant]
     Active Substance: ATORVASTATIN
     Dosage: 8 MG, QHS
     Route: 065
  2. LISINOPRIL. [Concomitant]
     Active Substance: LISINOPRIL
     Dosage: 10 MG, QD
     Route: 065
  3. SYSTANE (HYPROMELLOSE 2910 (4000 MPA.S)) [Concomitant]
     Active Substance: HYPROMELLOSE 2910 (4000 MPA.S)
     Dosage: UNKNOWN, TID
     Route: 047
  4. CLOPIDOGREL [Concomitant]
     Active Substance: CLOPIDOGREL BISULFATE
     Dosage: 75 MG, QD
     Route: 065
  5. CALCIUM 600 PLUS VITAMIN D [Concomitant]
     Active Substance: CALCIUM CARBONATE\VITAMIN D
     Dosage: UNK
     Route: 065
  6. MONTELUKAST [Concomitant]
     Active Substance: MONTELUKAST SODIUM
     Dosage: 10 MG, QD
     Route: 065
  7. RESTASIS [Suspect]
     Active Substance: CYCLOSPORINE
     Indication: DRY EYE
     Dosage: 2 GTT, BID
     Route: 047
     Dates: start: 2017, end: 20171210
  8. METOPROLOL. [Concomitant]
     Active Substance: METOPROLOL
     Dosage: 25 MG, QD
     Route: 065
  9. IRON [Concomitant]
     Active Substance: IRON
     Dosage: UNK
     Route: 065

REACTIONS (2)
  - Product dose omission [Unknown]
  - Product container issue [Unknown]

NARRATIVE: CASE EVENT DATE: 20171210
